FAERS Safety Report 12431963 (Version 1)
Quarter: 2016Q2

REPORT INFORMATION
  Report Type: Report from Study
  Country: None (occurrence: US)
  Receive Date: 20160603
  Receipt Date: 20160603
  Transmission Date: 20160815
  Serious: Yes (Hospitalization)
  Sender: FDA-Public Use
  Company Number: US-BIOVITRUM-2016US0385

PATIENT
  Sex: Male

DRUGS (1)
  1. ORFADIN [Suspect]
     Active Substance: NITISINONE
     Indication: TYROSINAEMIA
     Dosage: TDD 15 MG; 2MGX4 IN AM, 2MGX1 AND 5MGX1 IN PM.
     Route: 048
     Dates: start: 20140424

REACTIONS (3)
  - Protein total increased [Unknown]
  - Amino acid level increased [Unknown]
  - Ocular hyperaemia [Recovered/Resolved]
